FAERS Safety Report 9594508 (Version 1)
Quarter: 2013Q4

REPORT INFORMATION
  Report Type: Spontaneous
  Country: US (occurrence: US)
  Receive Date: 20131004
  Receipt Date: 20131004
  Transmission Date: 20140711
  Serious: No
  Sender: FDA-Public Use
  Company Number: US-GLAXOSMITHKLINE-A1018309A

PATIENT
  Sex: Female

DRUGS (1)
  1. IMITREX [Suspect]
     Dosage: 20MG UNKNOWN
     Route: 065
     Dates: start: 20130107

REACTIONS (3)
  - Influenza [Unknown]
  - Malaise [Unknown]
  - Chest pain [Unknown]
